FAERS Safety Report 16234664 (Version 2)
Quarter: 2019Q2

REPORT INFORMATION
  Report Type: Spontaneous
  Country: IT (occurrence: IT)
  Receive Date: 20190424
  Receipt Date: 20190607
  Transmission Date: 20190711
  Serious: Yes (Other)
  Sender: FDA-Public Use
  Company Number: IT-MYLANLABS-2019M1037693

PATIENT
  Age: 26 Year
  Sex: Male

DRUGS (2)
  1. ABBA                               /02043401/ [Suspect]
     Active Substance: AMOXICILLIN\CLAVULANATE POTASSIUM
     Indication: INFECTION
     Dosage: 2 DOSAGE FORM, QD
     Route: 048
     Dates: start: 20180921, end: 20180923
  2. IBUPROFEN. [Suspect]
     Active Substance: IBUPROFEN
     Indication: INFLAMMATION
     Dosage: 1 DOSAGE FORM, QD
     Route: 048
     Dates: start: 20180921, end: 20180923

REACTIONS (7)
  - Hypersensitivity [Recovering/Resolving]
  - Malaise [Recovering/Resolving]
  - Diarrhoea [Recovering/Resolving]
  - Rash papular [Recovering/Resolving]
  - Loss of consciousness [Recovering/Resolving]
  - Syncope [Recovering/Resolving]
  - Pruritus [Recovering/Resolving]

NARRATIVE: CASE EVENT DATE: 20180923
